FAERS Safety Report 26086477 (Version 1)
Quarter: 2025Q4

REPORT INFORMATION
  Report Type: Spontaneous
  Country: AU (occurrence: AU)
  Receive Date: 20251125
  Receipt Date: 20251125
  Transmission Date: 20260119
  Serious: Yes (Hospitalization)
  Sender: TAKEDA
  Company Number: AU-TAKEDA-2025TUS104417

PATIENT
  Sex: Male

DRUGS (1)
  1. ENTYVIO [Suspect]
     Active Substance: VEDOLIZUMAB
     Indication: Product used for unknown indication
     Dosage: UNK

REACTIONS (2)
  - Trigger finger [Recovering/Resolving]
  - Carpal tunnel syndrome [Recovering/Resolving]

NARRATIVE: CASE EVENT DATE: 20251009
